FAERS Safety Report 9989317 (Version 3)
Quarter: 2013Q4

REPORT INFORMATION
  Report Type: Spontaneous
  Country: US (occurrence: None)
  Receive Date: 20131025
  Receipt Date: 20131206
  Transmission Date: 20140711
  Serious: Yes (Other)
  Sender: FDA-Public Use
  Company Number: ADR-2011-10634

PATIENT
  Sex: Male

DRUGS (7)
  1. BACLOFEN [Suspect]
     Indication: PAIN
  2. DILAUDID [Suspect]
     Dosage: 3.0MG/DAY
  3. CLONIDINE [Suspect]
  4. BUPIVICAINE [Suspect]
  5. LORTAB [Suspect]
  6. OXYCONTIN [Suspect]
  7. METHADONE [Suspect]

REACTIONS (14)
  - Device kink [None]
  - Musculoskeletal pain [None]
  - Pain in extremity [None]
  - Hypoaesthesia [None]
  - Weight decreased [None]
  - No therapeutic response [None]
  - Neuralgia [None]
  - Implant site inflammation [None]
  - Spinal pain [None]
  - Device connection issue [None]
  - Therapy change [None]
  - Procedural complication [None]
  - Back pain [None]
  - Pain [None]
